FAERS Safety Report 8789311 (Version 1)
Quarter: 2012Q4

REPORT INFORMATION
  Report Type: Spontaneous
  Country: US (occurrence: None)
  Receive Date: 20120905
  Receipt Date: 20120905
  Transmission Date: 20130627
  Serious: Yes (Hospitalization, Other)
  Sender: FDA-Public Use
  Company Number: DKLU1082137

PATIENT
  Age: 12 Month
  Sex: Male
  Weight: 13.1 kg

DRUGS (17)
  1. SABRIL [Suspect]
     Indication: GENERALISED NON-CONVULSIVE EPILEPSY
     Route: 048
     Dates: start: 20120315
  2. SABRIL [Suspect]
     Indication: INFANTILE SPASMS
     Route: 048
     Dates: start: 20120315
  3. SABRIL [Suspect]
     Indication: GENERALISED NON-CONVULSIVE EPILEPSY
     Route: 048
  4. SABRIL [Suspect]
     Indication: INFANTILE SPASMS
     Route: 048
  5. SABRIL [Suspect]
     Indication: GENERALISED NON-CONVULSIVE EPILEPSY
     Route: 048
  6. SABRIL [Suspect]
     Indication: INFANTILE SPASMS
     Route: 048
  7. SABRIL [Suspect]
     Indication: GENERALISED NON-CONVULSIVE EPILEPSY
     Dosage: 750 mg milligram(s), AM, oral
     Route: 048
  8. SABRIL [Suspect]
     Indication: INFANTILE SPASMS
     Dosage: 750 mg milligram(s), AM, oral
     Route: 048
  9. SABRIL [Suspect]
     Indication: GENERALISED NON-CONVULSIVE EPILEPSY
     Dosage: 750 mg milligram(s), Afternoon, oral
     Route: 048
  10. SABRIL [Suspect]
     Indication: INFANTILE SPASMS
     Dosage: 750 mg milligram(s), Afternoon, oral
     Route: 048
  11. SABRIL [Suspect]
     Indication: GENERALISED NON-CONVULSIVE EPILEPSY
     Dosage: 1000 mg milligram(s), PM, oral
     Route: 048
  12. SABRIL [Suspect]
     Indication: INFANTILE SPASMS
     Dosage: 1000 mg milligram(s), PM, oral
     Route: 048
  13. ONFI (CLOBAZAM) (CLOBAZAM) [Concomitant]
  14. KEPPRA (LEVETIRACETAM) [Concomitant]
  15. B6 (PYRIDOXINE HYDROCHLORIDE) [Concomitant]
  16. DEPAKOTE (VALPROATE SEMISODIUM) [Concomitant]
  17. VIMPAT (LACOSAMIDE) [Concomitant]

REACTIONS (9)
  - Convulsion [None]
  - Deafness neurosensory [None]
  - Visual impairment [None]
  - Infantile spasms [None]
  - Myoclonus [None]
  - Hypotonia [None]
  - Somnolence [None]
  - Cerebral atrophy [None]
  - Mental impairment [None]
